FAERS Safety Report 13210131 (Version 1)
Quarter: 2017Q1

REPORT INFORMATION
  Report Type: Spontaneous
  Country: CA (occurrence: CA)
  Receive Date: 20170210
  Receipt Date: 20170210
  Transmission Date: 20170428
  Serious: Yes (Life-Threatening, Hospitalization)
  Sender: FDA-Public Use
  Company Number: CA-TEVA-737945ACC

PATIENT
  Age: 76 Year
  Sex: Female

DRUGS (8)
  1. GLYBURIDE. [Suspect]
     Active Substance: GLYBURIDE
  2. METFORMIN [Suspect]
     Active Substance: METFORMIN HYDROCHLORIDE
  3. ATENOLOL TABLETS, BP [Concomitant]
     Active Substance: ATENOLOL
  4. INVOKANA [Suspect]
     Active Substance: CANAGLIFLOZIN
     Indication: DIABETES MELLITUS
     Dosage: 100 MILLIGRAM DAILY;
     Route: 048
  5. JANUVIA [Suspect]
     Active Substance: SITAGLIPTIN PHOSPHATE
  6. SIMVASTATIN. [Concomitant]
     Active Substance: SIMVASTATIN
  7. PERINDOPRIL [Concomitant]
     Active Substance: PERINDOPRIL
  8. ASA [Concomitant]
     Active Substance: ASPIRIN

REACTIONS (3)
  - Urinary tract infection bacterial [Recovering/Resolving]
  - Diabetic ketoacidosis [Recovering/Resolving]
  - Urosepsis [Recovering/Resolving]
